FAERS Safety Report 9765135 (Version 1)
Quarter: 2013Q4

REPORT INFORMATION
  Report Type: Spontaneous
  Country: US (occurrence: US)
  Receive Date: 20131217
  Receipt Date: 20131217
  Transmission Date: 20140711
  Serious: No
  Sender: FDA-Public Use
  Company Number: US-GLAXOSMITHKLINE-A0998578A

PATIENT
  Age: 52 Year
  Sex: Male

DRUGS (11)
  1. VOTRIENT [Suspect]
     Indication: PRODUCT USED FOR UNKNOWN INDICATION
     Dosage: 800MG PER DAY
     Route: 048
     Dates: start: 20120915
  2. WELLBUTRIN XL [Suspect]
     Indication: PRODUCT USED FOR UNKNOWN INDICATION
     Route: 048
  3. LISINOPRIL [Concomitant]
  4. ALLOPURINOL [Concomitant]
  5. MULTIVITAMIN [Concomitant]
  6. COMPAZINE [Concomitant]
  7. HYDROCODONE [Concomitant]
  8. VILAZODONE [Concomitant]
  9. XANAX [Concomitant]
  10. PROVIGIL [Concomitant]
  11. TRAZODONE [Concomitant]

REACTIONS (8)
  - Diarrhoea [Recovering/Resolving]
  - Abdominal pain [Unknown]
  - Asthenia [Unknown]
  - Decreased appetite [Unknown]
  - Vomiting [Unknown]
  - Dehydration [Unknown]
  - Dizziness [Unknown]
  - Fatigue [Unknown]
